APPROVED DRUG PRODUCT: ACARBOSE
Active Ingredient: ACARBOSE
Strength: 25MG
Dosage Form/Route: TABLET;ORAL
Application: A213821 | Product #001
Applicant: HANGZHOU ZHONGMEI HUADONG PHARMACEUTICAL CO LTD
Approved: Aug 18, 2020 | RLD: No | RS: No | Type: DISCN